FAERS Safety Report 13931142 (Version 1)
Quarter: 2017Q3

REPORT INFORMATION
  Report Type: Spontaneous
  Country: US (occurrence: US)
  Receive Date: 20170902
  Receipt Date: 20170902
  Transmission Date: 20171127
  Serious: Yes (Other)
  Sender: FDA-Public Use
  Company Number: US-ROCHE-802406

PATIENT
  Sex: Female
  Weight: 97.16 kg

DRUGS (1)
  1. ACTEMRA [Suspect]
     Active Substance: TOCILIZUMAB
     Indication: RHEUMATOID ARTHRITIS
     Dosage: DOSE FORM: INFUSION
     Route: 042

REACTIONS (7)
  - Hypertension [Unknown]
  - Lacrimation increased [Unknown]
  - Eye pruritus [Unknown]
  - Peripheral swelling [Unknown]
  - Mouth swelling [Unknown]
  - Headache [Unknown]
  - Anaphylactic reaction [Recovered/Resolved]
